FAERS Safety Report 6533602-7 (Version None)
Quarter: 2010Q1

REPORT INFORMATION
  Report Type: 
  Country: None (occurrence: None)
  Receive Date: 20100108
  Receipt Date: 20100108
  Transmission Date: 20100710
  Serious: Yes (Other)
  Sender: FDA-Public Use
  Company Number: None

PATIENT
  Age: 14 Year
  Sex: Female
  Weight: 66.6788 kg

DRUGS (7)
  1. RISPERDAL [Suspect]
     Indication: AFFECTIVE DISORDER
     Dosage: 3 MG PO BID IN RESIDENTIAL TREATMENT
     Route: 048
  2. RISPERDAL [Suspect]
     Indication: PSYCHOTIC DISORDER
     Dosage: 3 MG PO BID IN RESIDENTIAL TREATMENT
     Route: 048
  3. LITHOBID [Concomitant]
  4. ZOLOFT [Concomitant]
  5. ADDERALL XR 10 [Concomitant]
  6. CLONIDINE [Concomitant]
  7. DEPAKOTE [Concomitant]

REACTIONS (2)
  - PRODUCT QUALITY ISSUE [None]
  - PRODUCT SUBSTITUTION ISSUE [None]
